FAERS Safety Report 18063731 (Version 2)
Quarter: 2020Q4

REPORT INFORMATION
  Report Type: Spontaneous
  Country: CH (occurrence: CH)
  Receive Date: 20200723
  Receipt Date: 20201001
  Transmission Date: 20210113
  Serious: Yes (Hospitalization, Other)
  Sender: FDA-Public Use
  Company Number: CH-AMGEN-CHESP2020118433

PATIENT
  Sex: Female

DRUGS (1)
  1. AIMOVIG [Suspect]
     Active Substance: ERENUMAB-AOOE
     Indication: FAMILIAL HEMIPLEGIC MIGRAINE
     Dosage: 70 MG, QMO
     Route: 065
     Dates: start: 201907

REACTIONS (4)
  - Drug ineffective for unapproved indication [Unknown]
  - Visual impairment [Unknown]
  - Paralysis [Unknown]
  - Dyspnoea [Unknown]

NARRATIVE: CASE EVENT DATE: 20200529
